FAERS Safety Report 6863189-0 (Version None)
Quarter: 2010Q3

REPORT INFORMATION
  Report Type: 
  Country: None (occurrence: None)
  Receive Date: 20100721
  Receipt Date: 20100609
  Transmission Date: 20110219
  Serious: Yes (Life-Threatening, Other)
  Sender: FDA-Public Use
  Company Number: US-BAXTER-2010BH003598

PATIENT
  Age: 38 Year
  Sex: Female
  Weight: 86 kg

DRUGS (2)
  1. HEPARIN SODIUM [Suspect]
     Indication: HAEMODIALYSIS
     Route: 058
     Dates: start: 20070916, end: 20071024
  2. HEPARIN SODIUM [Suspect]
     Route: 042
     Dates: start: 20070916, end: 20071024

REACTIONS (8)
  - ANURIA [None]
  - CARDIAC FAILURE [None]
  - HYPOTENSION [None]
  - INFECTION [None]
  - INJECTION SITE HAEMATOMA [None]
  - INJECTION SITE SWELLING [None]
  - OEDEMA PERIPHERAL [None]
  - PHARYNGEAL OEDEMA [None]
